FAERS Safety Report 6603275-3 (Version None)
Quarter: 2010Q1

REPORT INFORMATION
  Report Type: 
  Country: None (occurrence: None)
  Receive Date: 20100226
  Receipt Date: 20100217
  Transmission Date: 20100710
  Serious: Yes (Other)
  Sender: FDA-Public Use
  Company Number: CA-JNJFOC-20100207217

PATIENT
  Age: 42 Year
  Sex: Female

DRUGS (3)
  1. TRAMACET [Suspect]
     Indication: PAIN
     Route: 048
  2. CYMBALTA [Concomitant]
     Indication: PAIN
  3. TRAMADOL HCL [Concomitant]
     Indication: PAIN

REACTIONS (1)
  - MANIA [None]
